FAERS Safety Report 18619049 (Version 1)
Quarter: 2020Q4

REPORT INFORMATION
  Report Type: Spontaneous
  Country: US (occurrence: US)
  Receive Date: 20201215
  Receipt Date: 20201215
  Transmission Date: 20210114
  Serious: No
  Sender: FDA-Public Use
  Company Number: US-LUPIN PHARMACEUTICALS INC.-2020-10174

PATIENT
  Age: 82 Year

DRUGS (5)
  1. TRIAMCINOLONE [Suspect]
     Active Substance: TRIAMCINOLONE
     Indication: PRURITUS
     Dosage: UNK UNK, BID
     Route: 065
  2. BUTORPHANOL [Concomitant]
     Active Substance: BUTORPHANOL
     Indication: PRURITUS
     Dosage: 10 MILLIGRAM PER MILLILITRE, PRN (UPTO 4 HRS)
     Route: 045
  3. IVERMECTIN. [Suspect]
     Active Substance: IVERMECTIN
     Indication: PRURITUS
     Dosage: UNK
     Route: 065
  4. PREDNISONE. [Suspect]
     Active Substance: PREDNISONE
     Indication: PRURITUS
     Dosage: 10 MILLIGRAM, UNK
     Route: 065
  5. DIPHENHYDRAMINE. [Suspect]
     Active Substance: DIPHENHYDRAMINE
     Indication: PRURITUS
     Dosage: UNK
     Route: 065

REACTIONS (1)
  - Treatment failure [Unknown]
